FAERS Safety Report 4420542-2 (Version None)
Quarter: 2004Q3

REPORT INFORMATION
  Report Type: 
  Country: None (occurrence: None)
  Receive Date: 20040809
  Receipt Date: 20040325
  Transmission Date: 20050211
  Serious: No
  Sender: FDA-Public Use
  Company Number: US-GLAXOSMITHKLINE-A0504575A

PATIENT
  Age: 35 Year
  Sex: Male

DRUGS (5)
  1. PAXIL CR [Suspect]
     Dosage: 25MG PER DAY
     Route: 048
  2. TRYPTOPHAN [Concomitant]
  3. MULTIVITAMIN [Concomitant]
  4. HERBAL MEDICATION [Concomitant]
  5. CHROMIUM [Concomitant]

REACTIONS (4)
  - DIZZINESS [None]
  - DRUG WITHDRAWAL SYNDROME [None]
  - DYSPHORIA [None]
  - PROSTATITIS [None]
